FAERS Safety Report 6074494-2 (Version None)
Quarter: 2009Q1

REPORT INFORMATION
  Report Type: 
  Country: None (occurrence: None)
  Receive Date: 20090211
  Receipt Date: 20090127
  Transmission Date: 20090719
  Serious: Yes (Hospitalization, Other)
  Sender: FDA-Public Use
  Company Number: CA-GENENTECH-274841

PATIENT
  Sex: Male
  Weight: 109 kg

DRUGS (8)
  1. OMALIZUMAB [Suspect]
     Indication: ASTHMA
     Dosage: 300 MG, Q2W
     Route: 058
     Dates: start: 20061117
  2. VENTOLIN [Concomitant]
     Indication: DRUG USE FOR UNKNOWN INDICATION
  3. ATROVENT [Concomitant]
     Indication: DRUG USE FOR UNKNOWN INDICATION
  4. SYMBICORT [Concomitant]
     Indication: DRUG USE FOR UNKNOWN INDICATION
  5. CASODEX [Concomitant]
     Indication: PROSTATE CANCER
  6. PREDNISONE [Concomitant]
     Indication: DRUG USE FOR UNKNOWN INDICATION
     Dosage: 10 MG, UNK
  7. ATIVAN [Concomitant]
     Indication: DRUG USE FOR UNKNOWN INDICATION
  8. SYMBICORT [Concomitant]

REACTIONS (2)
  - LUNG NEOPLASM MALIGNANT [None]
  - PROSTATE CANCER [None]
